FAERS Safety Report 16420756 (Version 6)
Quarter: 2019Q3

REPORT INFORMATION
  Report Type: Spontaneous
  Country: HU (occurrence: HU)
  Receive Date: 20190612
  Receipt Date: 20190916
  Transmission Date: 20191004
  Serious: Yes (Life-Threatening, Hospitalization, Other)
  Sender: FDA-Public Use
  Company Number: PHHY2019HU133203

PATIENT
  Age: 60 Year
  Sex: Male

DRUGS (2)
  1. PARACETAMOL [Suspect]
     Active Substance: ACETAMINOPHEN
     Indication: INFLUENZA LIKE ILLNESS
     Dosage: MORE THAN 4 G, QD
     Route: 065
  2. PARACETAMOL [Suspect]
     Active Substance: ACETAMINOPHEN
     Dosage: MORE THAN 4 G, Q2W
     Route: 065

REACTIONS (5)
  - Acute hepatic failure [Recovered/Resolved]
  - Liver function test increased [Unknown]
  - Drug-induced liver injury [Not Recovered/Not Resolved]
  - Overdose [Recovered/Resolved]
  - Renal failure [Recovered/Resolved]
